FAERS Safety Report 4484115-8 (Version None)
Quarter: 2004Q4

REPORT INFORMATION
  Report Type: 
  Country: None (occurrence: None)
  Receive Date: 20041025
  Receipt Date: 20041012
  Transmission Date: 20050328
  Serious: Yes (Life-Threatening, Hospitalization, Disabling, Other)
  Sender: FDA-Public Use
  Company Number: US-MERCK-0410USA01609

PATIENT
  Age: 49 Year
  Sex: Female

DRUGS (14)
  1. VIOXX [Suspect]
     Indication: PAIN
     Route: 048
     Dates: start: 20010101, end: 20041001
  2. VIOXX [Suspect]
     Indication: INFLAMMATION
     Route: 048
     Dates: start: 20010101, end: 20041001
  3. FLUOXETINE [Concomitant]
     Route: 065
  4. NEURONTIN [Concomitant]
     Route: 065
  5. DOCUSATE SODIUM [Concomitant]
     Route: 065
  6. [THERAPY UNSPECIFIED] [Concomitant]
     Route: 065
  7. OXYBUTYNIN [Concomitant]
     Route: 065
  8. ACIPHEX [Concomitant]
     Route: 065
  9. COUMADIN [Concomitant]
     Route: 065
  10. DESMOPRESSIN (DESMOPRESSIN ACETATE) [Concomitant]
     Route: 065
  11. DDAVP [Concomitant]
     Route: 065
  12. CYCLOBENZAPRINE HYDROCHLORIDE [Concomitant]
     Route: 065
  13. TRAZODONE HYDROCHLORIDE [Concomitant]
     Route: 065
  14. HYDROCODONE HYDROCHLORIDE [Concomitant]
     Route: 065

REACTIONS (4)
  - BRAIN STEM SYNDROME [None]
  - CEREBROVASCULAR ACCIDENT [None]
  - NAUSEA [None]
  - VOMITING [None]
